FAERS Safety Report 13570874 (Version 1)
Quarter: 2017Q2

REPORT INFORMATION
  Report Type: Other
  Country: US (occurrence: US)
  Receive Date: 20170523
  Receipt Date: 20170523
  Transmission Date: 20170830
  Serious: Yes (Death, Other)
  Sender: FDA-Public Use
  Company Number: US-HETERO LABS LTD-2021074

PATIENT
  Age: 36 Year
  Sex: Male

DRUGS (5)
  1. VINCRISTINE SULFATE. [Suspect]
     Active Substance: VINCRISTINE SULFATE
     Route: 065
  2. PROCARBAZINE [Suspect]
     Active Substance: PROCARBAZINE
  3. RALTEGRAVIR. [Suspect]
     Active Substance: RALTEGRAVIR
     Route: 065
  4. EMTRICITABINE\TENOFOVIR. [Suspect]
     Active Substance: EMTRICITABINE\TENOFOVIR
     Indication: HIV INFECTION
     Route: 065
  5. METHOTREXATE SODIUM. [Suspect]
     Active Substance: METHOTREXATE SODIUM
     Route: 065

REACTIONS (1)
  - Neutropenic sepsis [Fatal]
